FAERS Safety Report 8262820-5 (Version None)
Quarter: 2012Q2

REPORT INFORMATION
  Report Type: 
  Country: None (occurrence: None)
  Receive Date: 20120405
  Receipt Date: 20120403
  Transmission Date: 20120825
  Serious: Yes (Other)
  Sender: FDA-Public Use
  Company Number: DE-JNJFOC-20120400367

PATIENT
  Sex: Female
  Weight: 70 kg

DRUGS (6)
  1. HYDROCHLOROTHIAZIDE [Concomitant]
  2. XARELTO [Suspect]
     Indication: ATRIAL FIBRILLATION
     Route: 048
     Dates: start: 20120126, end: 20120312
  3. ASPIRIN [Suspect]
     Indication: PRODUCT USED FOR UNKNOWN INDICATION
  4. BISOPROLOL FUMARATE [Concomitant]
  5. DIOVAN HCT [Concomitant]
  6. TORSEMIDE [Concomitant]

REACTIONS (3)
  - CIRCULATORY COLLAPSE [None]
  - MELAENA [None]
  - HAEMOGLOBIN DECREASED [None]
